FAERS Safety Report 17417861 (Version 1)
Quarter: 2020Q1

REPORT INFORMATION
  Report Type: Spontaneous
  Country: IT (occurrence: IT)
  Receive Date: 20200214
  Receipt Date: 20200214
  Transmission Date: 20200409
  Serious: Yes (Hospitalization)
  Sender: FDA-Public Use
  Company Number: IT-SUN PHARMACEUTICAL INDUSTRIES LTD-2020RR-236523

PATIENT
  Age: 60 Year
  Sex: Female

DRUGS (2)
  1. FLURAZEPAM MONOHYDROCHLORIDE [Suspect]
     Active Substance: FLURAZEPAM MONOHYDROCHLORIDE
     Indication: INSOMNIA
     Dosage: 20 DOSAGE FORMS, IN TOTAL
     Route: 048
     Dates: start: 20200119, end: 20200119
  2. CITALOPRAM [Suspect]
     Active Substance: CITALOPRAM HYDROBROMIDE
     Indication: MAJOR DEPRESSION
     Dosage: 15 MILLILITERS, IN TOTAL
     Route: 048
     Dates: start: 20200119, end: 20200119

REACTIONS (3)
  - Sopor [Recovering/Resolving]
  - Agitation [Recovering/Resolving]
  - Drug abuse [Recovering/Resolving]

NARRATIVE: CASE EVENT DATE: 20200119
